FAERS Safety Report 5191956-0 (Version None)
Quarter: 2006Q4

REPORT INFORMATION
  Report Type: 
  Country: None (occurrence: None)
  Receive Date: 20061227
  Receipt Date: 20061122
  Transmission Date: 20070319
  Serious: Yes (Hospitalization)
  Sender: FDA-Public Use
  Company Number: US-BRISTOL-MYERS SQUIBB COMPANY-13587217

PATIENT
  Age: 56 Year
  Sex: Male
  Weight: 72 kg

DRUGS (5)
  1. CETUXIMAB [Suspect]
     Indication: NEOPLASM MALIGNANT
     Dates: start: 20061113, end: 20061113
  2. DOCETAXEL [Suspect]
     Indication: NEOPLASM MALIGNANT
     Dates: start: 20061113, end: 20061113
  3. RADIATION THERAPY [Suspect]
     Indication: NEOPLASM MALIGNANT
     Dates: start: 20061114, end: 20061114
  4. FENTANYL TRANSDERMAL SYSTEM [Suspect]
     Route: 061
  5. OXYCODONE HCL [Suspect]
     Route: 037

REACTIONS (12)
  - ACUTE RESPIRATORY DISTRESS SYNDROME [None]
  - ASPIRATION [None]
  - CHILLS [None]
  - DEPRESSED LEVEL OF CONSCIOUSNESS [None]
  - FATIGUE [None]
  - GENERALISED OEDEMA [None]
  - HYPOALBUMINAEMIA [None]
  - LOCALISED OEDEMA [None]
  - PNEUMONIA [None]
  - PYREXIA [None]
  - RADIATION INJURY [None]
  - RENAL FAILURE [None]
